FAERS Safety Report 15477028 (Version 2)
Quarter: 2018Q4

REPORT INFORMATION
  Report Type: Spontaneous
  Country: US (occurrence: US)
  Receive Date: 20181009
  Receipt Date: 20181026
  Transmission Date: 20190205
  Serious: Yes (Other)
  Sender: FDA-Public Use
  Company Number: US-TEVA-2018-US-961725

PATIENT
  Age: 46 Year
  Sex: Male

DRUGS (7)
  1. CHLOROPHYLL [Concomitant]
     Route: 065
  2. TURMERIC [Concomitant]
     Active Substance: HERBALS\TURMERIC
     Route: 065
  3. ARGININE [Concomitant]
     Active Substance: ARGININE
     Route: 065
  4. ALPHA LIPOIC ACID [Concomitant]
     Active Substance: .ALPHA.-LIPOIC ACID
     Route: 065
  5. GLYCINE. [Concomitant]
     Active Substance: GLYCINE
     Route: 065
  6. DOXYCYCLINE. [Suspect]
     Active Substance: DOXYCYCLINE
     Indication: ACNE
     Route: 065
  7. LYSINE [Concomitant]
     Active Substance: LYSINE
     Route: 065

REACTIONS (1)
  - Hepatitis cholestatic [Recovered/Resolved]
